FAERS Safety Report 5988643-5 (Version None)
Quarter: 2008Q4

REPORT INFORMATION
  Report Type: 
  Country: None (occurrence: None)
  Receive Date: 20081208
  Receipt Date: 20081208
  Transmission Date: 20090506
  Serious: Yes (Life-Threatening, Hospitalization, Disabling)
  Sender: FDA-Public Use
  Company Number: None

PATIENT
  Age: 26 Year
  Sex: Female
  Weight: 56.246 kg

DRUGS (1)
  1. MIRENA [Suspect]
     Dosage: 1 I.U.D EVERY 5 YEARS INTRAUTERINE, EVERY DAY
     Route: 015
     Dates: start: 20080714, end: 20081204

REACTIONS (6)
  - INFECTION [None]
  - IUCD COMPLICATION [None]
  - IUD MIGRATION [None]
  - OVARIAN CYST [None]
  - OVARIAN MASS [None]
  - UTERINE RUPTURE [None]
